FAERS Safety Report 7970152-5 (Version None)
Quarter: 2011Q4

REPORT INFORMATION
  Report Type: 
  Country: None (occurrence: None)
  Receive Date: 20111212
  Receipt Date: 20111130
  Transmission Date: 20120403
  Serious: Yes (Hospitalization)
  Sender: FDA-Public Use
  Company Number: US-JNJFOC-20111201079

PATIENT
  Sex: Male
  Weight: 69.4 kg

DRUGS (4)
  1. ATENOLOL [Concomitant]
     Indication: ATRIAL TACHYCARDIA
     Route: 048
     Dates: start: 20000101
  2. PAXIL [Concomitant]
     Indication: ANXIETY
     Route: 048
     Dates: start: 20050101
  3. REMICADE [Suspect]
     Indication: CROHN'S DISEASE
     Route: 042
     Dates: start: 20100801, end: 20111114
  4. LEVOTHYROXINE SODIUM [Concomitant]
     Indication: THYROID DISORDER
     Route: 048
     Dates: start: 20010101

REACTIONS (3)
  - INTESTINAL STENOSIS [None]
  - CROHN'S DISEASE [None]
  - ANAPHYLACTIC REACTION [None]
